FAERS Safety Report 15506882 (Version 3)
Quarter: 2019Q1

REPORT INFORMATION
  Report Type: Spontaneous
  Country: PL (occurrence: PL)
  Receive Date: 20181016
  Receipt Date: 20190206
  Transmission Date: 20190417
  Serious: Yes (Other)
  Sender: FDA-Public Use
  Company Number: PL-ACCORD-073375

PATIENT
  Age: 41 Year
  Sex: Male

DRUGS (8)
  1. DROTAVERINE/DROTAVERINE HYDROCHLORIDE [Concomitant]
     Indication: PAIN
     Dosage: 80 MG, QD
  2. IRINOTECAN [Suspect]
     Active Substance: IRINOTECAN
     Indication: ADENOCARCINOMA PANCREAS
     Dates: start: 201608
  3. FENTANYL. [Suspect]
     Active Substance: FENTANYL
     Indication: PAIN
  4. FLUOROURACIL. [Suspect]
     Active Substance: FLUOROURACIL
     Indication: ADENOCARCINOMA PANCREAS
     Dates: start: 201608
  5. OXALIPLATIN. [Suspect]
     Active Substance: OXALIPLATIN
     Indication: ADENOCARCINOMA PANCREAS
     Dates: start: 201608
  6. GEMCITABINE/GEMCITABINE HYDROCHLORIDE [Suspect]
     Active Substance: GEMCITABINE\GEMCITABINE HYDROCHLORIDE
     Indication: PANCREATIC CARCINOMA
  7. PARACETAMOL/TRAMADOL [Concomitant]
     Indication: PAIN
     Dosage: 1 DF, TID
  8. FOLINIC ACID [Suspect]
     Active Substance: LEUCOVORIN
     Indication: ADENOCARCINOMA PANCREAS
     Dates: start: 201608

REACTIONS (11)
  - Jaundice [Unknown]
  - Neuralgia [Unknown]
  - Abdominal pain [Unknown]
  - Pancreatic carcinoma metastatic [Not Recovered/Not Resolved]
  - Adenocarcinoma pancreas [Unknown]
  - Weight increased [Unknown]
  - Leukopenia [Unknown]
  - Pain [Unknown]
  - Neutropenia [Unknown]
  - Metastases to liver [None]
  - Neuropathy peripheral [Not Recovered/Not Resolved]
